FAERS Safety Report 9021358 (Version 1)
Quarter: 2013Q1

REPORT INFORMATION
  Report Type: Spontaneous
  Country: US (occurrence: US)
  Receive Date: 20130119
  Receipt Date: 20130119
  Transmission Date: 20140127
  Serious: No
  Sender: FDA-Public Use
  Company Number: US-ALLERGAN-1202626US

PATIENT
  Age: 56 None
  Sex: Female

DRUGS (2)
  1. BOTOX COSMETIC [Suspect]
     Indication: SKIN WRINKLING
     Dosage: 54 UNITS, SINGLE
     Route: 030
     Dates: start: 20111222, end: 20111222
  2. JUVEDERM [Concomitant]

REACTIONS (1)
  - Headache [Not Recovered/Not Resolved]
